FAERS Safety Report 5598122-5 (Version None)
Quarter: 2008Q1

REPORT INFORMATION
  Report Type: 
  Country: None (occurrence: None)
  Receive Date: 20080122
  Receipt Date: 20080114
  Transmission Date: 20080703
  Serious: Yes (Death, Hospitalization)
  Sender: FDA-Public Use
  Company Number: NL-JNJFOC-20080103371

PATIENT
  Sex: Male

DRUGS (7)
  1. REMICADE [Suspect]
     Indication: CROHN'S DISEASE
     Route: 042
  2. FRAXIPARINE [Suspect]
     Indication: DRUG USE FOR UNKNOWN INDICATION
  3. PREDNISONE [Concomitant]
  4. IMURAN [Concomitant]
  5. SINTROM [Concomitant]
  6. PANTOPRAZOL [Concomitant]
  7. VIOXX [Concomitant]

REACTIONS (2)
  - HAEMORRHAGE [None]
  - NEOPLASM [None]
